FAERS Safety Report 21005695 (Version 1)
Quarter: 2022Q2

REPORT INFORMATION
  Report Type: Spontaneous
  Country: US (occurrence: None)
  Receive Date: 20220624
  Receipt Date: 20220624
  Transmission Date: 20220721
  Serious: Yes (unspecified)
  Sender: FDA-Public Use
  Company Number: None

PATIENT
  Age: 65 Year
  Sex: Male
  Weight: 98.88 kg

DRUGS (1)
  1. BEBTELOVIMAB [Suspect]
     Active Substance: BEBTELOVIMAB
     Indication: COVID-19
     Dosage: FREQUENCY : ONCE;?
     Route: 042
     Dates: start: 20220613, end: 20220613

REACTIONS (5)
  - Feeling abnormal [None]
  - Abdominal pain upper [None]
  - Flushing [None]
  - Oxygen saturation decreased [None]
  - Heart rate increased [None]

NARRATIVE: CASE EVENT DATE: 20220613
